FAERS Safety Report 7344901-3 (Version None)
Quarter: 2011Q1

REPORT INFORMATION
  Report Type: 
  Country: None (occurrence: None)
  Receive Date: 20110310
  Receipt Date: 20110307
  Transmission Date: 20110831
  Serious: Yes (Other)
  Sender: FDA-Public Use
  Company Number: US-AMGEN-USASP2011010660

PATIENT
  Age: 83 Year
  Sex: Female

DRUGS (3)
  1. NPLATE [Suspect]
     Indication: IDIOPATHIC THROMBOCYTOPENIC PURPURA
     Dosage: UNK A?G/KG, UNK
     Dates: start: 20090804, end: 20110105
  2. DECADRON [Concomitant]
  3. CORTICOSTEROIDS [Concomitant]

REACTIONS (1)
  - MANTLE CELL LYMPHOMA [None]
